FAERS Safety Report 4990844-X (Version None)
Quarter: 2006Q1

REPORT INFORMATION
  Report Type: 
  Country: None (occurrence: None)
  Receive Date: 20060314
  Receipt Date: 20051221
  Transmission Date: 20060701
  Serious: No
  Sender: FDA-Public Use
  Company Number: 2005-01011

PATIENT
  Age: 73 Year
  Sex: Male
  Weight: 82.5 kg

DRUGS (7)
  1. VELCADE [Suspect]
     Indication: MULTIPLE MYELOMA
     Dosage: 2.86 MG
     Dates: start: 20040816, end: 20041222
  2. ZOMETA [Concomitant]
  3. IMMUNE GLOBULIN INTRAVENOUS (HUMAN) [Concomitant]
  4. PROCRIT [Concomitant]
  5. COREG [Concomitant]
  6. LASIX [Concomitant]
  7. COUMADIN [Concomitant]

REACTIONS (3)
  - ABDOMINAL PAIN UPPER [None]
  - DECREASED APPETITE [None]
  - WEIGHT DECREASED [None]
